FAERS Safety Report 13607425 (Version 9)
Quarter: 2017Q4

REPORT INFORMATION
  Report Type: Report from Study
  Country: CA (occurrence: CA)
  Receive Date: 20170602
  Receipt Date: 20171024
  Transmission Date: 20180320
  Serious: Yes (Other)
  Sender: FDA-Public Use
  Company Number: CA-GLAXOSMITHKLINE-CA2017GSK081053

PATIENT
  Age: 59 Year
  Sex: Female

DRUGS (6)
  1. MEPOLIZUMAB [Suspect]
     Active Substance: MEPOLIZUMAB
     Dosage: 100 MG, Z
     Route: 042
  2. MEPOLIZUMAB [Suspect]
     Active Substance: MEPOLIZUMAB
     Dosage: 100 MG, UNK
     Route: 042
     Dates: start: 20170912
  3. MEPOLIZUMAB [Suspect]
     Active Substance: MEPOLIZUMAB
     Dosage: 100 MG, Z
     Dates: start: 20170724
  4. MEPOLIZUMAB [Suspect]
     Active Substance: MEPOLIZUMAB
     Dosage: 100 MG, Z
     Dates: start: 20170822
  5. MEPOLIZUMAB [Suspect]
     Active Substance: MEPOLIZUMAB
     Dosage: 100 MG, Z
     Route: 042
  6. MEPOLIZUMAB [Suspect]
     Active Substance: MEPOLIZUMAB
     Indication: ASTHMA
     Dosage: 100 MG, Z
     Route: 042

REACTIONS (19)
  - Dyspnoea [Unknown]
  - Nasopharyngitis [Unknown]
  - Asthenia [Unknown]
  - Oropharyngeal pain [Not Recovered/Not Resolved]
  - Muscular weakness [Unknown]
  - Infection susceptibility increased [Unknown]
  - Ear infection [Unknown]
  - Urinary tract infection [Unknown]
  - Malaise [Unknown]
  - Fatigue [Unknown]
  - Injection site rash [Unknown]
  - Fatigue [Unknown]
  - Dysphonia [Not Recovered/Not Resolved]
  - Injection site erythema [Unknown]
  - Condition aggravated [Unknown]
  - Asthma [Recovered/Resolved]
  - Lymphadenopathy [Unknown]
  - Sinusitis [Unknown]
  - Ear pain [Not Recovered/Not Resolved]

NARRATIVE: CASE EVENT DATE: 20170618
